FAERS Safety Report 7597804-3 (Version None)
Quarter: 2011Q3

REPORT INFORMATION
  Report Type: 
  Country: None (occurrence: None)
  Receive Date: 20110708
  Receipt Date: 20110630
  Transmission Date: 20111222
  Serious: Yes (Death)
  Sender: FDA-Public Use
  Company Number: PE-PFIZER INC-2011132659

PATIENT
  Age: 66 Year
  Sex: Male

DRUGS (3)
  1. VENTOLIN HFA [Concomitant]
     Dosage: UNK
     Route: 055
  2. XALATAN [Suspect]
     Indication: GLAUCOMA
     Dosage: 0.03 MG, 2X/DAY
     Route: 047
  3. SERETIDE [Concomitant]
     Dosage: UNK
     Route: 055

REACTIONS (1)
  - EMPHYSEMA [None]
